FAERS Safety Report 26168495 (Version 1)
Quarter: 2025Q4

REPORT INFORMATION
  Report Type: Spontaneous
  Country: US (occurrence: US)
  Receive Date: 20251217
  Receipt Date: 20251217
  Transmission Date: 20260118
  Serious: Yes (Other)
  Sender: NOVARTIS
  Company Number: US-002147023-NVSC2025US191510

PATIENT
  Age: 70 Year
  Sex: Female

DRUGS (1)
  1. KISQALI [Suspect]
     Active Substance: RIBOCICLIB SUCCINATE
     Indication: Breast cancer metastatic
     Dosage: 600 MG, OTHER (3 WEEKS ON 1 WEEK OFF)
     Route: 048
     Dates: start: 20250901, end: 20251201

REACTIONS (1)
  - Colitis [Recovered/Resolved]
